FAERS Safety Report 20896081 (Version 1)
Quarter: 2022Q2

REPORT INFORMATION
  Report Type: Report from Study
  Country: PK (occurrence: PK)
  Receive Date: 20220531
  Receipt Date: 20220531
  Transmission Date: 20220721
  Serious: Yes (Death, Other)
  Sender: FDA-Public Use
  Company Number: PK-NOVARTISPH-NVSC2022PK125288

PATIENT
  Sex: Female
  Weight: 57 kg

DRUGS (1)
  1. TASIGNA [Suspect]
     Active Substance: NILOTINIB
     Indication: Philadelphia positive chronic myeloid leukaemia
     Dosage: 200 MG (2+0+2)
     Route: 048
     Dates: start: 20141023

REACTIONS (4)
  - Philadelphia positive chronic myeloid leukaemia [Fatal]
  - Malignant neoplasm progression [Fatal]
  - Bicytopenia [Fatal]
  - Anaemia [Fatal]
